FAERS Safety Report 5619344-0 (Version None)
Quarter: 2008Q1

REPORT INFORMATION
  Report Type: 
  Country: None (occurrence: None)
  Receive Date: 20080114
  Receipt Date: 20070306
  Transmission Date: 20080703
  Serious: Yes (Hospitalization)
  Sender: FDA-Public Use
  Company Number: A03200701868

PATIENT
  Age: 65 Year
  Sex: Male

DRUGS (8)
  1. PLAVIX [Suspect]
     Indication: ANGIOPLASTY
     Dosage: ORAL
     Route: 048
  2. PLAVIX [Suspect]
     Indication: STENT PLACEMENT
     Dosage: ORAL
     Route: 048
  3. PLAVIX [Suspect]
     Indication: ANGIOPLASTY
     Dosage: 75 MG BID - ORAL
     Route: 048
  4. PLAVIX [Suspect]
     Indication: STENT PLACEMENT
     Dosage: 75 MG BID - ORAL
     Route: 048
  5. ASPIRIN [Suspect]
     Indication: STENT PLACEMENT
     Dosage: ORAL
     Route: 048
  6. COUMADIN [Suspect]
     Dosage: ORAL
     Route: 048
  7. BETA BLOCKER [Concomitant]
  8. ACE INHIBITOR [Concomitant]

REACTIONS (6)
  - ACUTE MYOCARDIAL INFARCTION [None]
  - ANGINA PECTORIS [None]
  - CARDIAC FAILURE CONGESTIVE [None]
  - CARDIOGENIC SHOCK [None]
  - OVERDOSE [None]
  - THROMBOSIS IN DEVICE [None]
